FAERS Safety Report 10513689 (Version 7)
Quarter: 2016Q4

REPORT INFORMATION
  Report Type: Spontaneous
  Country: US (occurrence: US)
  Receive Date: 20141013
  Receipt Date: 20161108
  Transmission Date: 20170206
  Serious: Yes (Life-Threatening, Hospitalization, Disabling, Other)
  Sender: FDA-Public Use
  Company Number: US-GLAXOSMITHKLINE-US2014GSK003937

PATIENT
  Age: 59 Year
  Sex: Male

DRUGS (6)
  1. SODIUM CHLORIDE NASAL SPRAY [Concomitant]
  2. ADVAIR DISKUS [Suspect]
     Active Substance: FLUTICASONE PROPIONATE\SALMETEROL XINAFOATE
     Indication: CHRONIC OBSTRUCTIVE PULMONARY DISEASE
     Dosage: UNK
  3. AMOXICILLIN. [Concomitant]
     Active Substance: AMOXICILLIN
  4. ADVAIR DISKUS [Suspect]
     Active Substance: FLUTICASONE PROPIONATE\SALMETEROL XINAFOATE
     Indication: MESOTHELIOMA
     Dosage: 1 PUFF(S), BID
     Route: 055
  5. PROVENTIL [Concomitant]
     Active Substance: ALBUTEROL
  6. PENICILLIN [Concomitant]
     Active Substance: PENICILLIN

REACTIONS (14)
  - Road traffic accident [Unknown]
  - Lung infection [Unknown]
  - Lung disorder [Not Recovered/Not Resolved]
  - Product use issue [Not Recovered/Not Resolved]
  - Headache [Unknown]
  - Fall [Unknown]
  - Impaired work ability [Not Recovered/Not Resolved]
  - Resuscitation [Recovered/Resolved]
  - Life support [Recovered/Resolved]
  - Disability [Not Recovered/Not Resolved]
  - Off label use [Not Recovered/Not Resolved]
  - Hospitalisation [Unknown]
  - Exposure to chemical pollution [Unknown]
  - Dyspnoea [Recovering/Resolving]

NARRATIVE: CASE EVENT DATE: 20151219
